FAERS Safety Report 23059388 (Version 1)
Quarter: 2023Q4

REPORT INFORMATION
  Report Type: Spontaneous
  Country: CN (occurrence: CN)
  Receive Date: 20231012
  Receipt Date: 20231012
  Transmission Date: 20240110
  Serious: Yes (Other)
  Sender: FDA-Public Use
  Company Number: None

PATIENT
  Age: 75 Year
  Sex: Male

DRUGS (1)
  1. CALCIPOTRIENE [Suspect]
     Active Substance: CALCIPOTRIENE
     Indication: Psoriasis
     Route: 003
     Dates: start: 20230705, end: 20230706

REACTIONS (1)
  - Dermatitis contact [Recovering/Resolving]

NARRATIVE: CASE EVENT DATE: 20230706
